FAERS Safety Report 8242580-4 (Version None)
Quarter: 2012Q1

REPORT INFORMATION
  Report Type: 
  Country: None (occurrence: None)
  Receive Date: 20120329
  Receipt Date: 20120321
  Transmission Date: 20120608
  Serious: Yes (Hospitalization)
  Sender: FDA-Public Use
  Company Number: PHHY2010JP20871

PATIENT
  Sex: Male
  Weight: 52 kg

DRUGS (6)
  1. GLYCEREB [Concomitant]
     Indication: REDUCTION OF INCREASED INTRACRANIAL PRESSURE
     Dosage: 400 ML, DAILY
     Route: 041
     Dates: start: 20091231, end: 20100102
  2. LEVOFLOXACIN [Concomitant]
     Indication: CELLULITIS
     Dosage: 500 MG, UNK
  3. ACYCLOVIR [Concomitant]
     Indication: HERPES ZOSTER
     Dosage: 1500 MG, DAILY
     Route: 041
     Dates: start: 20091231, end: 20100114
  4. TEGRETOL [Suspect]
     Indication: TRIGEMINAL NEURALGIA
     Dosage: 200 MG DAILY (100 MG TWICE DAILY, ONCE IN THE MORNING AND ONCE IN THE EVENING)
     Route: 048
     Dates: start: 20100101, end: 20100128
  5. CLONAZEPAM [Concomitant]
     Indication: TRIGEMINAL NEURALGIA
     Dosage: 0.5 MG, TID
     Route: 048
     Dates: start: 20100111, end: 20100128
  6. ACETAMINOPHEN [Concomitant]
     Indication: TRIGEMINAL NEURALGIA
     Route: 048
     Dates: start: 20100101

REACTIONS (31)
  - OEDEMA [None]
  - ERYTHEMA [None]
  - BLOOD CREATININE INCREASED [None]
  - INTESTINAL DILATATION [None]
  - PYREXIA [None]
  - BLOOD LACTATE DEHYDROGENASE INCREASED [None]
  - LYMPHOCYTE MORPHOLOGY ABNORMAL [None]
  - MALAISE [None]
  - CYTOMEGALOVIRUS TEST POSITIVE [None]
  - ABDOMINAL DISTENSION [None]
  - LYMPHADENOPATHY [None]
  - HEPATIC FUNCTION ABNORMAL [None]
  - INFLAMMATION [None]
  - WHITE BLOOD CELL COUNT INCREASED [None]
  - GRANULOCYTE COUNT INCREASED [None]
  - NEUTROPHIL COUNT INCREASED [None]
  - EOSINOPHIL COUNT INCREASED [None]
  - IMPAIRED INSULIN SECRETION [None]
  - DRUG RASH WITH EOSINOPHILIA AND SYSTEMIC SYMPTOMS [None]
  - RASH GENERALISED [None]
  - OEDEMA PERIPHERAL [None]
  - PRURITUS [None]
  - TYPE 1 DIABETES MELLITUS [None]
  - ABDOMINAL PAIN [None]
  - LYMPHOCYTE COUNT DECREASED [None]
  - GASTROINTESTINAL HYPOMOTILITY [None]
  - ILEUS PARALYTIC [None]
  - C-REACTIVE PROTEIN INCREASED [None]
  - BLOOD POTASSIUM INCREASED [None]
  - DECREASED APPETITE [None]
  - HUMAN HERPES VIRUS 6 SEROLOGY POSITIVE [None]
